FAERS Safety Report 5908748-4 (Version None)
Quarter: 2008Q4

REPORT INFORMATION
  Report Type: 
  Country: None (occurrence: None)
  Receive Date: 20081006
  Receipt Date: 20081003
  Transmission Date: 20090506
  Serious: Yes (Hospitalization)
  Sender: FDA-Public Use
  Company Number: B0540116A

PATIENT
  Age: 48 Year
  Sex: Male

DRUGS (4)
  1. KIVEXA [Suspect]
     Indication: HIV INFECTION
     Route: 048
     Dates: start: 20080919, end: 20080927
  2. LAMIVUDINE [Concomitant]
     Route: 065
  3. VIRAMUNE [Concomitant]
     Route: 065
  4. TENOFOVIR [Concomitant]
     Route: 065
     Dates: end: 20080918

REACTIONS (9)
  - ARTHRALGIA [None]
  - CONFUSIONAL STATE [None]
  - COUGH [None]
  - HYPERSENSITIVITY [None]
  - PAROTID GLAND ENLARGEMENT [None]
  - PAROTID GLAND INFLAMMATION [None]
  - PYREXIA [None]
  - RASH [None]
  - SOMNOLENCE [None]
